FAERS Safety Report 24005206 (Version 2)
Quarter: 2024Q2

REPORT INFORMATION
  Report Type: Spontaneous
  Country: US (occurrence: US)
  Receive Date: 20240624
  Receipt Date: 20240626
  Transmission Date: 20240717
  Serious: Yes (Life-Threatening, Other)
  Sender: FDA-Public Use
  Company Number: US-PFIZER INC-PV202400079996

PATIENT
  Age: 24 Year
  Sex: Male

DRUGS (1)
  1. NALOXONE HCL [Suspect]
     Active Substance: NALOXONE HYDROCHLORIDE
     Indication: Drug use disorder
     Dosage: 4 MG
     Route: 045

REACTIONS (3)
  - Pulmonary oedema [Recovering/Resolving]
  - Respiratory failure [Recovering/Resolving]
  - Incorrect route of product administration [Unknown]
